FAERS Safety Report 9681331 (Version 2)
Quarter: 2014Q1

REPORT INFORMATION
  Report Type: Spontaneous
  Country: US (occurrence: US)
  Receive Date: 20131111
  Receipt Date: 20140128
  Transmission Date: 20141002
  Serious: Yes (Hospitalization)
  Sender: FDA-Public Use
  Company Number: US-B.I. PHARMACEUTICALS,INC./RIDGEFIELD-2013-BI-35953BP

PATIENT
  Sex: Male
  Weight: 104.33 kg

DRUGS (9)
  1. PRADAXA [Suspect]
     Indication: ANTICOAGULANT THERAPY
     Dates: start: 20110713, end: 20121126
  2. PRADAXA [Suspect]
     Indication: ATRIAL FIBRILLATION
  3. SOTALOL [Concomitant]
  4. SYNTHROID [Concomitant]
  5. NIASPAN [Concomitant]
  6. ISOSORBIDE [Concomitant]
  7. LIPITOR [Concomitant]
  8. ZETIA [Concomitant]
  9. LOFIBRA [Concomitant]

REACTIONS (3)
  - Subdural haemorrhage [Unknown]
  - Haemorrhage intracranial [Unknown]
  - Subdural haematoma [Unknown]
